FAERS Safety Report 19069985 (Version 1)
Quarter: 2021Q1

REPORT INFORMATION
  Report Type: Spontaneous
  Country: US (occurrence: US)
  Receive Date: 20210329
  Receipt Date: 20210329
  Transmission Date: 20210420
  Serious: No
  Sender: FDA-Public Use
  Company Number: US-PFIZER INC-2021303193

PATIENT
  Age: 54 Year
  Sex: Female
  Weight: 90.25 kg

DRUGS (7)
  1. APPLE CIDER VINEGAR [Concomitant]
     Active Substance: APPLE CIDER VINEGAR
  2. ASPIRINE [Concomitant]
     Active Substance: ASPIRIN
  3. XELJANZ XR [Suspect]
     Active Substance: TOFACITINIB CITRATE
     Indication: PSORIATIC ARTHROPATHY
     Dosage: 11 MG, DAILY
     Route: 048
     Dates: start: 202012
  4. FUROSEMIDE. [Concomitant]
     Active Substance: FUROSEMIDE
  5. METOPROLOL TARTRATE. [Concomitant]
     Active Substance: METOPROLOL TARTRATE
  6. VITAMIN C [Concomitant]
     Active Substance: ASCORBIC ACID
  7. ELDERBERRY [SAMBUCUS NIGRA] [Concomitant]

REACTIONS (2)
  - Pain [Unknown]
  - Headache [Unknown]
